FAERS Safety Report 6369602-X (Version None)
Quarter: 2009Q3

REPORT INFORMATION
  Report Type: 
  Country: None (occurrence: None)
  Receive Date: 20090923
  Receipt Date: 20090923
  Transmission Date: 20100115
  Serious: Yes (Other)
  Sender: FDA-Public Use
  Company Number: PHHO2009PL00466

PATIENT
  Sex: Male
  Weight: 68.2 kg

DRUGS (10)
  1. DIOVAN [Suspect]
     Indication: HYPERTENSION
     Dosage: UNK
     Route: 048
     Dates: start: 20080801, end: 20090105
  2. DIOVAN [Suspect]
     Dosage: NO TREATMENT
     Dates: start: 20090105, end: 20090112
  3. DIOVAN [Suspect]
     Dosage: UNK
     Route: 048
     Dates: start: 20090113, end: 20090506
  4. DIOVAN [Suspect]
     Dosage: UNK
     Route: 048
     Dates: end: 20090621
  5. FOLIC ACID [Concomitant]
     Indication: RENAL FAILURE CHRONIC
  6. FOLIC ACID [Concomitant]
     Indication: ANAEMIA PROPHYLAXIS
  7. CALCIUM CARBONATE [Concomitant]
     Indication: RENAL FAILURE CHRONIC
     Dosage: UNK
  8. CALCIUM CARBONATE [Concomitant]
     Indication: MINERAL SUPPLEMENTATION
  9. COD-LIVER OIL [Concomitant]
     Indication: RENAL FAILURE CHRONIC
     Dosage: UNK
  10. ALFACALCIDOL [Concomitant]
     Indication: VITAMIN D

REACTIONS (6)
  - BLOOD CREATININE INCREASED [None]
  - CONCOMITANT DISEASE PROGRESSION [None]
  - CYSTATIN C INCREASED [None]
  - HYPERKALAEMIA [None]
  - HYPOVOLAEMIA [None]
  - RENAL FAILURE CHRONIC [None]
